FAERS Safety Report 8546749-0 (Version None)
Quarter: 2012Q3

REPORT INFORMATION
  Report Type: 
  Country: None (occurrence: None)
  Receive Date: 20120727
  Receipt Date: 20120305
  Transmission Date: 20120928
  Serious: No
  Sender: FDA-Public Use
  Company Number: US-ASTRAZENECA-2012SE08192

PATIENT
  Age: 33 Year
  Sex: Female

DRUGS (2)
  1. SEROQUEL [Suspect]
     Indication: BIPOLAR DISORDER
     Route: 048
  2. SEROQUEL [Suspect]
     Route: 048

REACTIONS (11)
  - MENTAL STATUS CHANGES [None]
  - DEPERSONALISATION [None]
  - MALAISE [None]
  - NAUSEA [None]
  - TREMOR [None]
  - VOMITING [None]
  - INCORRECT DOSE ADMINISTERED [None]
  - DRUG DOSE OMISSION [None]
  - PHOTOPHOBIA [None]
  - HEADACHE [None]
  - ILL-DEFINED DISORDER [None]
